FAERS Safety Report 4313422-4 (Version None)
Quarter: 2004Q1

REPORT INFORMATION
  Report Type: 
  Country: None (occurrence: None)
  Receive Date: 20040305
  Receipt Date: 20040305
  Transmission Date: 20041129
  Serious: Yes (Hospitalization)
  Sender: FDA-Public Use
  Company Number: None

PATIENT
  Sex: Female
  Weight: 88.6 kg

DRUGS (2)
  1. VANCOMYCIN [Suspect]
     Indication: BACTERAEMIA
     Dosage: 1 GM/250ML QD IV
     Route: 042
  2. VANCOMYCIN [Suspect]
     Indication: STAPHYLOCOCCAL INFECTION
     Dosage: 1 GM/250ML QD IV
     Route: 042

REACTIONS (1)
  - RASH [None]
